FAERS Safety Report 9093159 (Version 2)
Quarter: 2013Q1

REPORT INFORMATION
  Report Type: Spontaneous
  Country: US (occurrence: US)
  Receive Date: 20130201
  Receipt Date: 20130321
  Transmission Date: 20140127
  Serious: Yes (Hospitalization)
  Sender: FDA-Public Use
  Company Number: US-009507513-1301USA013225

PATIENT
  Sex: Female

DRUGS (10)
  1. FOSAMAX [Suspect]
     Dosage: 70 MG, QW
     Route: 048
     Dates: start: 20121025
  2. SYNTHROID [Concomitant]
  3. ASPIRIN [Concomitant]
  4. CALCIUM CITRATE [Concomitant]
  5. MIRALAX [Concomitant]
     Route: 048
  6. VITAMIN D (UNSPECIFIED) [Concomitant]
  7. CYANOCOBALAMIN [Concomitant]
  8. FERROUS GLUCONATE [Concomitant]
  9. TYLENOL [Concomitant]
  10. ASCORBIC ACID [Concomitant]

REACTIONS (5)
  - Hip fracture [Recovering/Resolving]
  - Fall [Recovering/Resolving]
  - Drug administration error [Unknown]
  - Dysphagia [Unknown]
  - Wrong technique in drug usage process [Unknown]
